FAERS Safety Report 6723323-X (Version None)
Quarter: 2010Q2

REPORT INFORMATION
  Report Type: 
  Country: None (occurrence: None)
  Receive Date: 20100513
  Receipt Date: 20100513
  Transmission Date: 20101027
  Serious: No
  Sender: FDA-Public Use
  Company Number: None

PATIENT
  Age: 13 Year
  Sex: Female
  Weight: 58.9676 kg

DRUGS (4)
  1. CHILDREN'S MOTRIN [Suspect]
     Indication: HEADACHE
     Dosage: 3 TSP 6-8 HOURS PO
     Route: 048
  2. CHILDREN'S MOTRIN [Suspect]
  3. CLARITIN [Concomitant]
  4. ANTIBOTIC [Concomitant]

REACTIONS (5)
  - ARTHRALGIA [None]
  - ERYTHEMA [None]
  - PRODUCT CONTAMINATION [None]
  - RASH [None]
  - URTICARIA [None]
